FAERS Safety Report 8493833-6 (Version None)
Quarter: 2012Q3

REPORT INFORMATION
  Report Type: 
  Country: None (occurrence: None)
  Receive Date: 20120706
  Receipt Date: 20120702
  Transmission Date: 20120928
  Serious: Yes (Other)
  Sender: FDA-Public Use
  Company Number: PHHY2012GB056702

PATIENT
  Age: 55 Year
  Sex: Female
  Weight: 59 kg

DRUGS (3)
  1. NAPROXEN [Concomitant]
     Dosage: UNK
     Dates: start: 20120319, end: 20120416
  2. AMLODIPINE [Suspect]
     Dates: start: 20120312
  3. RAMIPRIL [Concomitant]
     Dates: start: 20120312, end: 20120409

REACTIONS (2)
  - RESTLESS LEGS SYNDROME [None]
  - ARTHRALGIA [None]
